FAERS Safety Report 10749921 (Version 1)
Quarter: 2015Q1

REPORT INFORMATION
  Report Type: Report from Study
  Country: JP (occurrence: JP)
  Receive Date: 20150129
  Receipt Date: 20150129
  Transmission Date: 20150721
  Serious: Yes (Death)
  Sender: FDA-Public Use
  Company Number: JP-CUBIST PHARMACEUTICALS, INC.-2014CBST000116

PATIENT

DRUGS (6)
  1. DAPTOMYCIN. [Suspect]
     Active Substance: DAPTOMYCIN
     Indication: STAPHYLOCOCCAL SEPSIS
     Dosage: 6 MG/KG, ONCE DAILY
     Route: 041
     Dates: start: 20131203, end: 20131204
  2. DAPTOMYCIN. [Suspect]
     Active Substance: DAPTOMYCIN
     Indication: OFF LABEL USE
  3. PROPOFOL. [Concomitant]
     Active Substance: PROPOFOL
     Indication: STAPHYLOCOCCAL SEPSIS
     Dosage: 6 G, ONCE DAILY
     Route: 042
     Dates: start: 20131126, end: 20131204
  4. CEFEPIME [Concomitant]
     Active Substance: CEFEPIME\CEFEPIME HYDROCHLORIDE
     Indication: STAPHYLOCOCCAL SEPSIS
     Dosage: 4 G, QD
     Route: 042
     Dates: start: 20131122, end: 20131204
  5. NOREPINEPHRINE [Concomitant]
     Active Substance: NOREPINEPHRINE\NOREPINEPHRINE BITARTRATE
     Indication: STAPHYLOCOCCAL SEPSIS
     Dosage: 12 MG, ONCE DAILY
     Route: 042
     Dates: start: 20131126, end: 20131204
  6. FENTANYL CITRATE. [Concomitant]
     Active Substance: FENTANYL CITRATE
     Indication: STAPHYLOCOCCAL SEPSIS
     Dosage: 1.5 MG, ONCE DAILY
     Route: 042
     Dates: start: 20131126, end: 20131204

REACTIONS (2)
  - Off label use [Unknown]
  - Death [Fatal]
